FAERS Safety Report 15732488 (Version 1)
Quarter: 2018Q4

REPORT INFORMATION
  Report Type: Spontaneous
  Country: US (occurrence: US)
  Receive Date: 20181217
  Receipt Date: 20181217
  Transmission Date: 20190205
  Serious: Yes (Death)
  Sender: FDA-Public Use
  Company Number: US-VIFOR (INTERNATIONAL) INC.-VIT-2018-10260

PATIENT
  Age: 84 Year
  Sex: Female

DRUGS (9)
  1. ATORVASTATIN CALCIUM. [Concomitant]
     Active Substance: ATORVASTATIN CALCIUM
  2. VITAMIN D3 [Concomitant]
     Active Substance: CHOLECALCIFEROL
  3. ZETIA [Concomitant]
     Active Substance: EZETIMIBE
  4. ASPIRIN. [Concomitant]
     Active Substance: ASPIRIN
  5. METOPROLOL TARTRATE. [Concomitant]
     Active Substance: METOPROLOL TARTRATE
  6. VELTASSA [Suspect]
     Active Substance: PATIROMER
     Indication: HYPERKALAEMIA
     Route: 048
  7. AMLODIPINE BESYLATE. [Concomitant]
     Active Substance: AMLODIPINE BESYLATE
  8. FENOFIBRATE. [Concomitant]
     Active Substance: FENOFIBRATE
  9. GLUCOPHAGE [Concomitant]
     Active Substance: METFORMIN HYDROCHLORIDE

REACTIONS (1)
  - Death [Fatal]

NARRATIVE: CASE EVENT DATE: 20180329
